FAERS Safety Report 6217293-0 (Version None)
Quarter: 2009Q2

REPORT INFORMATION
  Report Type: 
  Country: None (occurrence: None)
  Receive Date: 20090608
  Receipt Date: 20090604
  Transmission Date: 20091009
  Serious: Yes (Disabling, Other)
  Sender: FDA-Public Use
  Company Number: US-PFIZER INC-2009169406

PATIENT
  Sex: Female
  Weight: 53 kg

DRUGS (2)
  1. GEODON [Suspect]
     Indication: ANXIETY
  2. GEODON [Suspect]
     Indication: PANIC ATTACK

REACTIONS (4)
  - ACTIVITIES OF DAILY LIVING IMPAIRED [None]
  - COLON CANCER [None]
  - DYSTONIA [None]
  - HEPATIC CANCER METASTATIC [None]
